FAERS Safety Report 5659734-3 (Version None)
Quarter: 2008Q1

REPORT INFORMATION
  Report Type: 
  Country: None (occurrence: None)
  Receive Date: 20080311
  Receipt Date: 20070709
  Transmission Date: 20080703
  Serious: No
  Sender: FDA-Public Use
  Company Number: US-BAYER-200712158BCC

PATIENT
  Age: 51 Year
  Sex: Female
  Weight: 86 kg

DRUGS (4)
  1. ALEVE (CAPLET) [Suspect]
     Indication: BACK PAIN
     Dosage: UNIT DOSE: 220 MG
     Route: 048
     Dates: start: 20070707
  2. BUPROPION HCL [Concomitant]
  3. VITAMIN D [Concomitant]
  4. ASPIRIN [Concomitant]
     Dosage: TOTAL DAILY DOSE: 650 MG

REACTIONS (4)
  - HYPERSENSITIVITY [None]
  - RASH [None]
  - SWELLING FACE [None]
  - URTICARIA [None]
